FAERS Safety Report 25246619 (Version 1)
Quarter: 2025Q2

REPORT INFORMATION
  Report Type: Spontaneous
  Country: US (occurrence: US)
  Receive Date: 20250428
  Receipt Date: 20250428
  Transmission Date: 20250717
  Serious: No
  Sender: CORIUM
  Company Number: US-MIMS-CORIMC-5250

PATIENT
  Age: 52 Year
  Sex: Female

DRUGS (1)
  1. AZSTARYS [Suspect]
     Active Substance: DEXMETHYLPHENIDATE HYDROCHLORIDE\SERDEXMETHYLPHENIDATE CHLORIDE
     Indication: Attention deficit hyperactivity disorder
     Route: 065

REACTIONS (6)
  - Paraesthesia [Unknown]
  - Paranasal sinus discomfort [Unknown]
  - Emotional disorder [Unknown]
  - Disturbance in attention [Not Recovered/Not Resolved]
  - Initial insomnia [Unknown]
  - Drug ineffective [Unknown]
